FAERS Safety Report 21551718 (Version 2)
Quarter: 2022Q4

REPORT INFORMATION
  Report Type: Report from Study
  Country: PL (occurrence: PL)
  Receive Date: 20221103
  Receipt Date: 20221202
  Transmission Date: 20230113
  Serious: Yes (Hospitalization)
  Sender: FDA-Public Use
  Company Number: PL-JNJFOC-20221055117

PATIENT
  Age: 57 Year
  Sex: Male
  Weight: 83.4 kg

DRUGS (31)
  1. ESKETAMINE [Suspect]
     Active Substance: ESKETAMINE
     Indication: Depression
     Dates: start: 20180130, end: 20221019
  2. ESCITALOPRAM [Concomitant]
     Active Substance: ESCITALOPRAM OXALATE
     Indication: Depression
     Route: 048
     Dates: start: 20170816, end: 20190115
  3. ESCITALOPRAM [Concomitant]
     Active Substance: ESCITALOPRAM OXALATE
     Route: 048
     Dates: start: 20190116, end: 20190120
  4. ESCITALOPRAM [Concomitant]
     Active Substance: ESCITALOPRAM OXALATE
     Route: 048
     Dates: start: 20220831, end: 20220903
  5. ESCITALOPRAM [Concomitant]
     Active Substance: ESCITALOPRAM OXALATE
     Route: 048
     Dates: start: 20220904
  6. INDAPAMIDE\PERINDOPRIL ERBUMINE [Concomitant]
     Active Substance: INDAPAMIDE\PERINDOPRIL ERBUMINE
     Indication: Hypertension
     Dosage: PERINDOPRILUM 4 MG + INDAPAMIDUM 1.25 MG
     Route: 048
     Dates: start: 2013
  7. FURAZIDINE [Concomitant]
     Active Substance: FURAZIDINE
     Indication: Urinary tract infection
     Route: 048
     Dates: start: 20190120, end: 20190127
  8. FURAZIDINE [Concomitant]
     Active Substance: FURAZIDINE
     Route: 048
     Dates: start: 20190416, end: 20190420
  9. CLONAZEPAM [Concomitant]
     Active Substance: CLONAZEPAM
     Indication: Anxiety
     Route: 048
     Dates: start: 20190415, end: 20190415
  10. LEVOFLOXACIN [Concomitant]
     Active Substance: LEVOFLOXACIN
     Indication: Urinary tract infection
     Route: 048
     Dates: start: 20200120, end: 20200130
  11. DROTAVERINE HYDROCHLORIDE [Concomitant]
     Active Substance: DROTAVERINE HYDROCHLORIDE
     Indication: Urinary tract infection
     Dosage: DROTAVERINI HYDROCHLORIDUM
     Route: 048
     Dates: start: 20200117, end: 20200122
  12. METAMIZOLE SODIUM [Concomitant]
     Active Substance: METAMIZOLE SODIUM
     Indication: Urinary tract infection
     Route: 048
     Dates: start: 20200117, end: 20200122
  13. ACETAMINOPHEN [Concomitant]
     Active Substance: ACETAMINOPHEN
     Indication: Urinary tract infection
     Route: 048
     Dates: start: 20200117, end: 20200119
  14. ACETAMINOPHEN [Concomitant]
     Active Substance: ACETAMINOPHEN
     Indication: COVID-19
     Route: 048
     Dates: start: 20220126, end: 20220203
  15. PANTOPRAZOLE [Concomitant]
     Active Substance: PANTOPRAZOLE
     Indication: Infection prophylaxis
     Route: 048
     Dates: start: 20200117, end: 20200130
  16. PANTOPRAZOLE [Concomitant]
     Active Substance: PANTOPRAZOLE
     Indication: Urinary tract infection
  17. IBUPROFEN [Concomitant]
     Active Substance: IBUPROFEN
     Indication: Nasopharyngitis
     Route: 048
     Dates: start: 20200315, end: 20200322
  18. DIAZEPAM [Concomitant]
     Active Substance: DIAZEPAM
     Indication: Anxiety
     Route: 048
     Dates: start: 20200322, end: 20200322
  19. DULOXETINE [Concomitant]
     Active Substance: DULOXETINE
     Indication: Depression
     Route: 048
     Dates: start: 20200525, end: 20220830
  20. DULOXETINE [Concomitant]
     Active Substance: DULOXETINE
     Route: 048
     Dates: start: 20200521, end: 20200524
  21. DULOXETINE [Concomitant]
     Active Substance: DULOXETINE
     Route: 048
     Dates: start: 20220831, end: 20220903
  22. TRANXENE [Concomitant]
     Active Substance: CLORAZEPATE DIPOTASSIUM
     Indication: Anxiety
     Route: 048
     Dates: start: 20200607, end: 20200607
  23. ASPIRIN [Concomitant]
     Active Substance: ASPIRIN
     Indication: Nasopharyngitis
     Route: 048
     Dates: start: 20220110, end: 20220113
  24. ASCORBIC ACID [Concomitant]
     Active Substance: ASCORBIC ACID
     Indication: COVID-19
     Route: 048
     Dates: start: 20220126, end: 20220203
  25. ASCORBIC ACID [Concomitant]
     Active Substance: ASCORBIC ACID
     Route: 048
     Dates: start: 20220126, end: 20220203
  26. RUTIN [Concomitant]
     Active Substance: RUTIN
     Indication: COVID-19
     Route: 048
     Dates: start: 20220126, end: 20220203
  27. PAROXETINE [Concomitant]
     Active Substance: PAROXETINE
     Indication: Depression
     Route: 048
     Dates: start: 20190116, end: 20190120
  28. PAROXETINE [Concomitant]
     Active Substance: PAROXETINE
     Route: 048
     Dates: start: 20190121, end: 20190218
  29. PAROXETINE [Concomitant]
     Active Substance: PAROXETINE
     Route: 048
     Dates: start: 20190219, end: 20200520
  30. PAROXETINE [Concomitant]
     Active Substance: PAROXETINE
     Route: 048
     Dates: start: 20200521, end: 20200524
  31. LEVOTHYROXINE [Concomitant]
     Active Substance: LEVOTHYROXINE
     Indication: Urinary tract infection
     Dates: start: 202001, end: 202001

REACTIONS (1)
  - Limb injury [Recovered/Resolved]

NARRATIVE: CASE EVENT DATE: 20221023
